FAERS Safety Report 11522405 (Version 3)
Quarter: 2016Q2

REPORT INFORMATION
  Report Type: Report from Study
  Country: GB (occurrence: GB)
  Receive Date: 20150918
  Receipt Date: 20160421
  Transmission Date: 20160815
  Serious: Yes (Hospitalization)
  Sender: FDA-Public Use
  Company Number: GB-BRISTOL-MYERS SQUIBB COMPANY-BMS-2015-060753

PATIENT
  Age: 47 Year
  Sex: Female
  Weight: 74.4 kg

DRUGS (4)
  1. NIVOLUMAB [Suspect]
     Active Substance: NIVOLUMAB
     Dosage: 222 MG, UNK
     Route: 065
     Dates: start: 20150803, end: 20150803
  2. NIVOLUMAB [Suspect]
     Active Substance: NIVOLUMAB
     Dosage: 222 MG, UNK
     Route: 065
     Dates: start: 20150817, end: 20150817
  3. NIVOLUMAB [Suspect]
     Active Substance: NIVOLUMAB
     Indication: MALIGNANT MELANOMA
     Dosage: 222 MG, UNK
     Route: 065
     Dates: start: 20150622, end: 20150622
  4. NIVOLUMAB [Suspect]
     Active Substance: NIVOLUMAB
     Dosage: 222 MG, UNK
     Route: 065
     Dates: start: 20150706, end: 20150706

REACTIONS (3)
  - Dehydration [Recovering/Resolving]
  - Nausea [Recovering/Resolving]
  - Vomiting [Recovered/Resolved]

NARRATIVE: CASE EVENT DATE: 20150826
